FAERS Safety Report 8584140-1 (Version None)
Quarter: 2012Q3

REPORT INFORMATION
  Report Type: 
  Country: None (occurrence: None)
  Receive Date: 20120810
  Receipt Date: 20120802
  Transmission Date: 20120928
  Serious: No
  Sender: FDA-Public Use
  Company Number: US-009507513-1208USA002025

PATIENT

DRUGS (1)
  1. IMPLANON [Suspect]
     Indication: CONTRACEPTION
     Dosage: 68MG
     Route: 059
     Dates: start: 20101201

REACTIONS (3)
  - MENORRHAGIA [None]
  - DEPRESSION [None]
  - MENSTRUATION IRREGULAR [None]
